FAERS Safety Report 7772524-0 (Version None)
Quarter: 2011Q3

REPORT INFORMATION
  Report Type: 
  Country: None (occurrence: None)
  Receive Date: 20110922
  Receipt Date: 20110307
  Transmission Date: 20111222
  Serious: No
  Sender: FDA-Public Use
  Company Number: US-ASTRAZENECA-2011SE12896

PATIENT
  Sex: Female

DRUGS (5)
  1. ADVIL LIQUI-GELS [Concomitant]
  2. SEROQUEL [Suspect]
     Indication: INSOMNIA
     Route: 048
     Dates: end: 20110217
  3. SEROQUEL [Suspect]
     Route: 048
     Dates: start: 20110226
  4. SEROQUEL [Suspect]
     Route: 048
     Dates: start: 20110226
  5. SEROQUEL [Suspect]
     Indication: AFFECTIVE DISORDER
     Route: 048
     Dates: end: 20110217

REACTIONS (13)
  - MUSCLE TIGHTNESS [None]
  - DRY MOUTH [None]
  - DIARRHOEA [None]
  - ABDOMINAL PAIN UPPER [None]
  - MALAISE [None]
  - DRUG WITHDRAWAL SYNDROME [None]
  - DRUG DOSE OMISSION [None]
  - APHAGIA [None]
  - VOMITING [None]
  - PALPITATIONS [None]
  - RESPIRATORY RATE INCREASED [None]
  - MOBILITY DECREASED [None]
  - NIGHT SWEATS [None]
